FAERS Safety Report 7381608-0 (Version None)
Quarter: 2011Q1

REPORT INFORMATION
  Report Type: 
  Country: None (occurrence: None)
  Receive Date: 20110329
  Receipt Date: 20100908
  Transmission Date: 20110831
  Serious: Yes (Other)
  Sender: FDA-Public Use
  Company Number: US-BAYER-201010668NA

PATIENT
  Sex: Female
  Weight: 65.76 kg

DRUGS (5)
  1. ASCORBIC ACID [Concomitant]
     Dosage: UNK
     Dates: start: 19970101
  2. YAZ [Suspect]
     Indication: PREMENSTRUAL SYNDROME
     Dosage: 1 DF, QD
     Dates: start: 20070516, end: 20091201
  3. PAXIL CR [Concomitant]
     Indication: DEPRESSION
     Dosage: 37.5 MG, CONT
  4. MOTRIN [Concomitant]
     Dosage: UNK
     Dates: start: 20000101
  5. PRAVASTATIN [Concomitant]
     Indication: HYPERCHOLESTEROLAEMIA
     Dosage: 40 MG, CONT

REACTIONS (4)
  - CHOLELITHIASIS [None]
  - CHOLECYSTECTOMY [None]
  - CHOLECYSTITIS CHRONIC [None]
  - PAIN [None]
